FAERS Safety Report 9039251 (Version 1)
Quarter: 2013Q1

REPORT INFORMATION
  Report Type: Report from Study
  Country: US (occurrence: US)
  Receive Date: 20130129
  Receipt Date: 20130129
  Transmission Date: 20140127
  Serious: No
  Sender: FDA-Public Use
  Company Number: US-ABBOTT-12P-163-0933082-00

PATIENT
  Sex: Female
  Weight: 72.64 kg

DRUGS (5)
  1. HUMIRA 40 MG/0.8 ML PEN [Suspect]
     Indication: CROHN^S DISEASE
     Route: 058
     Dates: start: 2009
  2. VITAMIN B12 [Concomitant]
     Indication: PERNICIOUS ANAEMIA
     Route: 030
  3. LISINOPRIL [Concomitant]
     Indication: HYPERTENSION
  4. UNKNOWN MEDICATIONS [Concomitant]
     Indication: BLOOD CHOLESTEROL
  5. ANTIDEPRESSANTS [Concomitant]
     Indication: DEPRESSION

REACTIONS (1)
  - Injection site bruising [Recovering/Resolving]
